FAERS Safety Report 10983634 (Version 2)
Quarter: 2015Q2

REPORT INFORMATION
  Report Type: Report from Study
  Country: CO (occurrence: CO)
  Receive Date: 20150403
  Receipt Date: 20150403
  Transmission Date: 20150821
  Serious: Yes (Other)
  Sender: FDA-Public Use
  Company Number: CO-ABBVIE-15P-036-1369855-00

PATIENT
  Age: 35 Year
  Sex: Female
  Weight: 55 kg

DRUGS (1)
  1. ZEMPLAR [Suspect]
     Active Substance: PARICALCITOL
     Indication: HYPERPARATHYROIDISM SECONDARY
     Route: 048
     Dates: start: 20130716, end: 20150228

REACTIONS (4)
  - Blood phosphorus abnormal [Recovering/Resolving]
  - Blood parathyroid hormone abnormal [Recovering/Resolving]
  - Blood calcium abnormal [Recovering/Resolving]
  - Renal impairment [Recovering/Resolving]

NARRATIVE: CASE EVENT DATE: 201407
